FAERS Safety Report 9160902 (Version 1)
Quarter: 2013Q1

REPORT INFORMATION
  Report Type: Spontaneous
  Country: DK (occurrence: None)
  Receive Date: 20130219
  Receipt Date: 20130219
  Transmission Date: 20140127
  Serious: Yes (Disabling)
  Sender: FDA-Public Use
  Company Number: FK201300422

PATIENT
  Age: 58 Year
  Sex: Female

DRUGS (3)
  1. PACLITAXEL [Suspect]
     Indication: BREAST CANCER METASTATIC
     Dates: start: 201106, end: 20110706
  2. PREDNISOLONE (PREDNISOLONE) [Concomitant]
  3. PACLITAXEL [Suspect]

REACTIONS (9)
  - Sensory disturbance [None]
  - Neuralgia [None]
  - Hypokinesia [None]
  - Gait disturbance [None]
  - Fatigue [None]
  - Discomfort [None]
  - Diabetes mellitus [None]
  - Vision blurred [None]
  - Adrenocorticotropic hormone deficiency [None]
